FAERS Safety Report 25843920 (Version 1)
Quarter: 2025Q3

REPORT INFORMATION
  Report Type: Spontaneous
  Country: JP (occurrence: JP)
  Receive Date: 20250925
  Receipt Date: 20250925
  Transmission Date: 20251021
  Serious: Yes (Other)
  Sender: JOHNSON AND JOHNSON
  Company Number: JP-BAYER-2025A126524

PATIENT

DRUGS (1)
  1. XARELTO [Suspect]
     Active Substance: RIVAROXABAN
     Indication: Cerebral infarction
     Route: 048

REACTIONS (6)
  - Jaundice cholestatic [Unknown]
  - Child-Pugh-Turcotte score increased [Unknown]
  - Blood albumin increased [Unknown]
  - Blood bilirubin increased [Unknown]
  - Product use in unapproved indication [Unknown]
  - Contraindicated product administered [Unknown]
